FAERS Safety Report 21267905 (Version 6)
Quarter: 2022Q3

REPORT INFORMATION
  Report Type: Report from Study
  Country: US (occurrence: US)
  Receive Date: 20220829
  Receipt Date: 20220922
  Transmission Date: 20221027
  Serious: No
  Sender: FDA-Public Use
  Company Number: US-NOVARTISTESTPH-NVSC2022US194104

PATIENT
  Age: 11 Year
  Sex: Female

DRUGS (3)
  1. OMNITROPE [Suspect]
     Active Substance: SOMATROPIN
     Indication: Short stature
     Dosage: 1.4 MG, QD (10 MG/1.5 ML)
     Route: 058
     Dates: start: 20220824
  2. OMNITROPE [Suspect]
     Active Substance: SOMATROPIN
     Dosage: 1.4 MG, QD (10 MG/1.5 ML)
     Route: 058
     Dates: start: 20220825
  3. OMNITROPE [Suspect]
     Active Substance: SOMATROPIN
     Dosage: UNK (10 MG/1.5 ML)
     Route: 065

REACTIONS (3)
  - Injection site extravasation [Unknown]
  - Device leakage [Unknown]
  - Accidental exposure to product [Unknown]

NARRATIVE: CASE EVENT DATE: 20220824
